FAERS Safety Report 23351541 (Version 4)
Quarter: 2024Q1

REPORT INFORMATION
  Report Type: Spontaneous
  Country: BR (occurrence: BR)
  Receive Date: 20231229
  Receipt Date: 20240131
  Transmission Date: 20240409
  Serious: Yes (Other)
  Sender: FDA-Public Use
  Company Number: BR-BIOMARINAP-BR-2023-154788

PATIENT

DRUGS (2)
  1. VIMIZIM [Suspect]
     Active Substance: ELOSULFASE ALFA
     Indication: Mucopolysaccharidosis IV
     Dosage: UNK UNK, QW
     Route: 042
     Dates: start: 2017
  2. FUROSEMIDE [Concomitant]
     Active Substance: FUROSEMIDE
     Indication: Product used for unknown indication

REACTIONS (16)
  - Pulmonary arterial hypertension [Recovering/Resolving]
  - Left atrial enlargement [Unknown]
  - Ventricular hypertrophy [Unknown]
  - Diastolic dysfunction [Unknown]
  - Ventricular dyskinesia [Unknown]
  - Mitral valve thickening [Unknown]
  - Aortic valve thickening [Unknown]
  - Mitral valve incompetence [Unknown]
  - Tricuspid valve incompetence [Unknown]
  - Aortic valve disease mixed [Unknown]
  - Aortic dilatation [Unknown]
  - Blood creatinine decreased [Unknown]
  - Malaise [Unknown]
  - Asthenia [Unknown]
  - Feeling abnormal [Unknown]
  - Lung disorder [Unknown]

NARRATIVE: CASE EVENT DATE: 20170101
